FAERS Safety Report 4487576-3 (Version None)
Quarter: 2004Q4

REPORT INFORMATION
  Report Type: 
  Country: None (occurrence: None)
  Receive Date: 20041027
  Receipt Date: 20041027
  Transmission Date: 20050328
  Serious: Yes (Hospitalization)
  Sender: FDA-Public Use
  Company Number: None

PATIENT
  Age: 77 Year
  Sex: Male
  Weight: 91.6266 kg

DRUGS (2)
  1. LISPRO 100 U/ML [Suspect]
     Indication: DIABETES MELLITUS
     Dosage: 10 U BEFORE MEALS SQ
     Route: 058
     Dates: start: 20040610, end: 20040826
  2. GLARGINE [Suspect]

REACTIONS (2)
  - BLOOD GLUCOSE DECREASED [None]
  - MEDICATION ERROR [None]
